FAERS Safety Report 18649939 (Version 2)
Quarter: 2020Q4

REPORT INFORMATION
  Report Type: Report from Study
  Country: FR (occurrence: FR)
  Receive Date: 20201222
  Receipt Date: 20201229
  Transmission Date: 20210114
  Serious: Yes (Other)
  Sender: FDA-Public Use
  Company Number: FR-PFIZER INC-2020495881

PATIENT

DRUGS (4)
  1. LEUCOVORIN [FOLINIC ACID] [Concomitant]
     Active Substance: LEUCOVORIN
     Indication: PANCREATIC CARCINOMA
     Dosage: 400 MG/M2, GIVEN AS A 2-HOUR INTRAVENOUS
     Route: 042
  2. FLUOROURACILE [Concomitant]
     Active Substance: FLUOROURACIL
     Indication: PANCREATIC CARCINOMA
     Dosage: 2400 MG/M2, ADMINISTERED BY CONTINUOUS INTRAVENOUS INFUSION
     Route: 042
  3. IRINOTECAN [Concomitant]
     Active Substance: IRINOTECAN
     Indication: PANCREATIC CARCINOMA
     Dosage: 180 MG/M2, ADMINISTERED AS A 90-MINUTE INTRAVENOUS
     Route: 042
  4. OXALIPLATIN. [Suspect]
     Active Substance: OXALIPLATIN
     Indication: PANCREATIC CARCINOMA
     Dosage: 85 MG/M2,  A 2-HOUR INTRAVENOUS INFUSION
     Route: 042

REACTIONS (1)
  - Neuropathy peripheral [Unknown]
